FAERS Safety Report 6607515-6 (Version None)
Quarter: 2010Q1

REPORT INFORMATION
  Report Type: 
  Country: None (occurrence: None)
  Receive Date: 20100301
  Receipt Date: 20100217
  Transmission Date: 20100710
  Serious: Yes (Death, Other)
  Sender: FDA-Public Use
  Company Number: PHHY2008GB29643

PATIENT
  Sex: Female

DRUGS (2)
  1. CLOZARIL [Suspect]
     Indication: SCHIZOPHRENIA
     Dosage: UNK
     Dates: start: 19920708
  2. CLOZAPINE [Concomitant]
     Dosage: UNK

REACTIONS (5)
  - ARTERIOSCLEROSIS CORONARY ARTERY [None]
  - BRONCHITIS CHRONIC [None]
  - EMPHYSEMA [None]
  - MYOCARDIAL ISCHAEMIA [None]
  - OBSTRUCTIVE AIRWAYS DISORDER [None]
